FAERS Safety Report 18969760 (Version 6)
Quarter: 2022Q1

REPORT INFORMATION
  Report Type: Report from Study
  Country: BR (occurrence: BR)
  Receive Date: 20210304
  Receipt Date: 20220310
  Transmission Date: 20220423
  Serious: Yes (Other)
  Sender: FDA-Public Use
  Company Number: BR-TAKEDA-2021TUS012436

PATIENT
  Age: 1 Year
  Sex: Male

DRUGS (6)
  1. HEMO-8R [Suspect]
     Active Substance: ANTIHEMOPHILIC FACTOR, HUMAN RECOMBINANT
     Indication: Factor VIII deficiency
     Dosage: 250 INTERNATIONAL UNIT, 1/WEEK
     Route: 042
     Dates: start: 20201221
  2. HEMO-8R [Suspect]
     Active Substance: ANTIHEMOPHILIC FACTOR, HUMAN RECOMBINANT
     Dosage: 250 INTERNATIONAL UNIT
     Route: 065
     Dates: start: 202012
  3. HEMO-8R [Suspect]
     Active Substance: ANTIHEMOPHILIC FACTOR, HUMAN RECOMBINANT
     Dosage: 250 INTERNATIONAL UNIT
     Route: 065
     Dates: start: 202011
  4. HEMO-8R [Suspect]
     Active Substance: ANTIHEMOPHILIC FACTOR, HUMAN RECOMBINANT
     Dosage: 250 INTERNATIONAL UNIT, 1/WEEK
     Route: 042
     Dates: start: 202101
  5. HEMO-8R [Suspect]
     Active Substance: ANTIHEMOPHILIC FACTOR, HUMAN RECOMBINANT
     Dosage: 500 INTERNATIONAL UNIT
     Route: 065
  6. FEIBA NF [Suspect]
     Active Substance: ANTI-INHIBITOR COAGULANT COMPLEX
     Indication: Factor VIII deficiency
     Dosage: 250 INTERNATIONAL UNIT, 1/WEEK
     Route: 042
     Dates: start: 20201221

REACTIONS (15)
  - Contusion [Recovering/Resolving]
  - Drug ineffective [Recovering/Resolving]
  - Haemorrhage [Unknown]
  - Thrombosis [Recovered/Resolved]
  - Haematoma [Recovered/Resolved]
  - Face injury [Recovered/Resolved]
  - Fall [Recovered/Resolved]
  - Peyronie^s disease [Unknown]
  - Limb injury [Unknown]
  - Head injury [Unknown]
  - Peripheral swelling [Unknown]
  - Pain [Unknown]
  - Gait disturbance [Recovered/Resolved]
  - Injury [Recovering/Resolving]
  - Limb discomfort [Recovered/Resolved]

NARRATIVE: CASE EVENT DATE: 20210501
